FAERS Safety Report 12139983 (Version 1)
Quarter: 2016Q1

REPORT INFORMATION
  Report Type: Spontaneous
  Country: US (occurrence: None)
  Receive Date: 20160302
  Receipt Date: 20160302
  Transmission Date: 20160526
  Serious: Yes (Life-Threatening, Disabling)
  Sender: FDA-Public Use
  Company Number: None

PATIENT
  Age: 27 Year
  Sex: Female
  Weight: 51.71 kg

DRUGS (17)
  1. LANTUS [Suspect]
     Active Substance: INSULIN GLARGINE
  2. DEXCOM [Concomitant]
  3. ONE TOUCH TEST STRIPS [Concomitant]
  4. HUMALOG [Suspect]
     Active Substance: INSULIN LISPRO
  5. VICKS VAPORUB [Concomitant]
     Active Substance: CAMPHOR (SYNTHETIC)\EUCALYPTUS OIL\MENTHOL
  6. DEPLIN [Concomitant]
     Active Substance: LEVOMEFOLATE CALCIUM
  7. LEVOTHYROXIN [Concomitant]
     Active Substance: LEVOTHYROXINE
  8. FLONASE [Concomitant]
     Active Substance: FLUTICASONE PROPIONATE
  9. NOVOLIN-R [Concomitant]
  10. OMNI POD [Concomitant]
  11. AFREZZA [Concomitant]
     Active Substance: INSULIN HUMAN
  12. TRAMADOL. [Concomitant]
     Active Substance: TRAMADOL
  13. PROAIR INHALER [Concomitant]
  14. ONE TOUCH LANCETS [Concomitant]
  15. ONE TOUCH GLUCOSE METER [Concomitant]
  16. LEVOCETERIZINE [Concomitant]
  17. NOVOLOG [Suspect]
     Active Substance: INSULIN ASPART

REACTIONS (41)
  - Sinus disorder [None]
  - Muscular weakness [None]
  - Dyspnoea [None]
  - Dizziness [None]
  - Influenza like illness [None]
  - Bedridden [None]
  - Eye swelling [None]
  - Arthralgia [None]
  - Chest discomfort [None]
  - Heart rate increased [None]
  - Chest pain [None]
  - Nausea [None]
  - Feeling abnormal [None]
  - Urticaria [None]
  - Insulin resistance [None]
  - Pain [None]
  - Lung disorder [None]
  - Atrophy [None]
  - Hot flush [None]
  - Erythema [None]
  - Headache [None]
  - Muscle spasms [None]
  - Feeling hot [None]
  - Throat tightness [None]
  - Asthenia [None]
  - Wheezing [None]
  - Joint crepitation [None]
  - Night sweats [None]
  - Blood glucose abnormal [None]
  - Pruritus generalised [None]
  - Cough [None]
  - Bone pain [None]
  - Hyperhidrosis [None]
  - Temperature intolerance [None]
  - Pain in extremity [None]
  - Cardiac flutter [None]
  - Reaction to preservatives [None]
  - Nasal congestion [None]
  - Fatigue [None]
  - Malaise [None]
  - Rash [None]

NARRATIVE: CASE EVENT DATE: 20150118
